FAERS Safety Report 23364505 (Version 3)
Quarter: 2025Q3

REPORT INFORMATION
  Report Type: Spontaneous
  Country: US (occurrence: US)
  Receive Date: 20240104
  Receipt Date: 20250825
  Transmission Date: 20251021
  Serious: No
  Sender: BIOVITRUM
  Company Number: US-BIOVITRUM-2023-US-021560

PATIENT
  Age: 12 Month
  Sex: Female
  Weight: 7.57 kg

DRUGS (4)
  1. SYNAGIS [Suspect]
     Active Substance: PALIVIZUMAB
     Indication: Antiviral prophylaxis
     Route: 030
  2. SYNAGIS [Suspect]
     Active Substance: PALIVIZUMAB
     Indication: Premature baby
  3. SYNAGIS [Suspect]
     Active Substance: PALIVIZUMAB
     Indication: Bronchopulmonary dysplasia
  4. SYNAGIS [Suspect]
     Active Substance: PALIVIZUMAB
     Indication: Respiratory failure

REACTIONS (2)
  - Respiratory syncytial virus infection [Unknown]
  - Ear infection [Unknown]
